FAERS Safety Report 8170064-0 (Version None)
Quarter: 2012Q1

REPORT INFORMATION
  Report Type: 
  Country: None (occurrence: None)
  Receive Date: 20120106
  Receipt Date: 20110901
  Transmission Date: 20120608
  Serious: Yes (Other)
  Sender: FDA-Public Use
  Company Number: 20110633

PATIENT
  Age: 58 Year
  Sex: Male

DRUGS (1)
  1. VENOFER [Suspect]
     Indication: IRON DEFICIENCY ANAEMIA
     Dosage: 50 ML INTRAVENOUS
     Route: 042
     Dates: start: 20110822, end: 20110822

REACTIONS (1)
  - DYSPNOEA [None]
